FAERS Safety Report 17106725 (Version 1)
Quarter: 2019Q4

REPORT INFORMATION
  Report Type: Spontaneous
  Country: FR (occurrence: FR)
  Receive Date: 20191203
  Receipt Date: 20191203
  Transmission Date: 20200122
  Serious: Yes (Disabling)
  Sender: FDA-Public Use
  Company Number: FR-ZYDUS-044054

PATIENT
  Age: 84 Year
  Sex: Male
  Weight: 69 kg

DRUGS (10)
  1. BISOPROLOL HEMIFUMARATE [Suspect]
     Active Substance: BISOPROLOL FUMARATE
     Indication: HYPERTENSION
     Route: 048
     Dates: start: 201705, end: 201910
  2. FIRMAGON [Suspect]
     Active Substance: DEGARELIX ACETATE
     Indication: PROSTATE CANCER
     Route: 058
     Dates: start: 20181008
  3. RAMIPRIL. [Suspect]
     Active Substance: RAMIPRIL
     Indication: HYPERTENSION
     Route: 048
     Dates: start: 2016, end: 20191004
  4. ONDANSETRON [Suspect]
     Active Substance: ONDANSETRON
     Indication: PREMEDICATION
     Dosage: CYCLICAL
     Route: 042
     Dates: start: 20190716, end: 20190917
  5. RANITIDINE (CHLORHYDRATE DE) [Suspect]
     Active Substance: RANITIDINE HYDROCHLORIDE
     Indication: PREMEDICATION
     Dosage: CYCLICAL
     Route: 041
     Dates: start: 20190716, end: 20190917
  6. JEVTANA [Suspect]
     Active Substance: CABAZITAXEL
     Indication: PROSTATE CANCER
     Dosage: CYCLICAL
     Route: 041
     Dates: start: 20190716, end: 20190917
  7. METHYLPREDNISOLONE. [Suspect]
     Active Substance: METHYLPREDNISOLONE
     Indication: PREMEDICATION
     Dosage: CYCLICAL
     Route: 041
     Dates: start: 20190716, end: 20190917
  8. ACETYLSALICYLATE LYSINE/ACETYLSALICYLIC ACID [Suspect]
     Active Substance: ASPIRIN DL-LYSINE
     Indication: PRODUCT USED FOR UNKNOWN INDICATION
     Dosage: 75 MG POWDER FOR ORAL SOLUTION IN A SACHET
     Route: 048
     Dates: start: 201704, end: 20190921
  9. DOCETAXEL. [Suspect]
     Active Substance: DOCETAXEL
     Indication: PROSTATE CANCER
     Dosage: CYCLICAL
     Route: 041
     Dates: start: 20180327, end: 20181210
  10. DEXCHLORPHENIRAMINE MALEATE. [Suspect]
     Active Substance: DEXCHLORPHENIRAMINE MALEATE
     Indication: PREMEDICATION
     Dosage: CYCLICAL
     Route: 042
     Dates: start: 20190716, end: 20190917

REACTIONS (2)
  - Necrotising retinitis [Not Recovered/Not Resolved]
  - Retinal detachment [Recovered/Resolved with Sequelae]

NARRATIVE: CASE EVENT DATE: 201909
